FAERS Safety Report 19266883 (Version 1)
Quarter: 2021Q2

REPORT INFORMATION
  Report Type: Spontaneous
  Country: DE (occurrence: DE)
  Receive Date: 20210517
  Receipt Date: 20210517
  Transmission Date: 20210717
  Serious: Yes (Other)
  Sender: FDA-Public Use
  Company Number: NVSC2021DE100118

PATIENT
  Age: 80 Year
  Sex: Male

DRUGS (3)
  1. LOPERAMIDE [Suspect]
     Active Substance: LOPERAMIDE
     Indication: PRODUCT USED FOR UNKNOWN INDICATION
     Dosage: UNK
     Route: 065
  2. TANNACOMP [ALBUMIN TANNATE;ETHACRIDINE LACTATE] [Suspect]
     Active Substance: ALBUMIN TANNATE\ETHACRIDINE LACTATE
     Indication: DIARRHOEA
     Dosage: QD (3/4 TABLET)
     Route: 065
  3. OMEPRAZOLE. [Suspect]
     Active Substance: OMEPRAZOLE
     Indication: PRODUCT USED FOR UNKNOWN INDICATION
     Dosage: UNK
     Route: 065

REACTIONS (4)
  - Polyneuropathy [Not Recovered/Not Resolved]
  - Drug effective for unapproved indication [Not Recovered/Not Resolved]
  - Vitamin B6 increased [Not Recovered/Not Resolved]
  - Off label use [Not Recovered/Not Resolved]
